FAERS Safety Report 5323979-2 (Version None)
Quarter: 2007Q2

REPORT INFORMATION
  Report Type: 
  Country: None (occurrence: None)
  Receive Date: 20070514
  Receipt Date: 20070507
  Transmission Date: 20071010
  Serious: Yes (Hospitalization, Other)
  Sender: FDA-Public Use
  Company Number: US-MERCK-0605USA04315

PATIENT
  Sex: Female
  Weight: 66 kg

DRUGS (5)
  1. FOSAMAX [Suspect]
     Indication: OSTEOPOROSIS PROPHYLAXIS
     Route: 048
     Dates: start: 19970409
  2. FOSAMAX [Suspect]
     Route: 048
     Dates: end: 20050801
  3. VITAMINS (UNSPECIFIED) [Concomitant]
     Route: 065
  4. ASPIRIN [Concomitant]
     Route: 065
  5. DAYPRO [Concomitant]
     Route: 065

REACTIONS (10)
  - DYSGEUSIA [None]
  - GASTROENTERITIS [None]
  - GINGIVAL DISORDER [None]
  - MUSCULOSKELETAL PAIN [None]
  - NECK PAIN [None]
  - OEDEMA MOUTH [None]
  - ORAL PAIN [None]
  - OSTEOMYELITIS [None]
  - OSTEONECROSIS [None]
  - TOOTH DISORDER [None]
